FAERS Safety Report 19605299 (Version 2)
Quarter: 2021Q3

REPORT INFORMATION
  Report Type: Spontaneous
  Country: RO (occurrence: RO)
  Receive Date: 20210724
  Receipt Date: 20210806
  Transmission Date: 20211014
  Serious: Yes (Other)
  Sender: FDA-Public Use
  Company Number: RO-TEVA-2021-RO-1934352

PATIENT
  Age: 56 Year

DRUGS (1)
  1. CISPLATIN. [Suspect]
     Active Substance: CISPLATIN
     Dosage: 100 MG FOR 60 MINUTES AT 41 DEGREES CELSIUS, USING THE COLISEUM TECHNIQUE
     Route: 065

REACTIONS (1)
  - Acute kidney injury [Not Recovered/Not Resolved]
